FAERS Safety Report 11594187 (Version 1)
Quarter: 2015Q4

REPORT INFORMATION
  Report Type: Spontaneous
  Country: IL (occurrence: IL)
  Receive Date: 20151005
  Receipt Date: 20151005
  Transmission Date: 20160304
  Serious: Yes (Other)
  Sender: FDA-Public Use
  Company Number: IL-MYLANLABS-2015M1032881

PATIENT

DRUGS (1)
  1. DEXAMETHASONE. [Suspect]
     Active Substance: DEXAMETHASONE
     Indication: ADENOIDAL HYPERTROPHY
     Dosage: 2 DROPS TO EACH NOSTRIL 3 TIMES DAILY
     Route: 045

REACTIONS (3)
  - Extra dose administered [Unknown]
  - Cushing^s syndrome [Recovering/Resolving]
  - Overdose [Recovering/Resolving]
